APPROVED DRUG PRODUCT: BROMOCRIPTINE MESYLATE
Active Ingredient: BROMOCRIPTINE MESYLATE
Strength: EQ 5MG BASE
Dosage Form/Route: CAPSULE;ORAL
Application: A075100 | Product #001
Applicant: LEK PHARMACEUTICAL AND CHEMICAL CO DD
Approved: Dec 10, 1998 | RLD: No | RS: No | Type: DISCN